FAERS Safety Report 25485019 (Version 2)
Quarter: 2025Q4

REPORT INFORMATION
  Report Type: Spontaneous
  Country: EU (occurrence: EU)
  Receive Date: 20250626
  Receipt Date: 20251007
  Transmission Date: 20260118
  Serious: Yes (Other)
  Sender: RANBAXY
  Company Number: EU-SEMPA-2025-001826

PATIENT
  Age: 13 Year
  Sex: Female
  Weight: 68 kg

DRUGS (5)
  1. SERTRALINE [Suspect]
     Active Substance: SERTRALINE HYDROCHLORIDE
     Indication: Depression
     Dosage: 100 MILLIGRAM, DAILY, 1X1
     Route: 065
     Dates: start: 20201125, end: 20241213
  2. MELATONIN [Concomitant]
     Active Substance: MELATONIN
     Indication: Product used for unknown indication
     Dosage: UNK
     Route: 065
  3. LISDEXAMFETAMINE DIMESYLATE [Concomitant]
     Active Substance: LISDEXAMFETAMINE DIMESYLATE
     Indication: Product used for unknown indication
     Dosage: UNK
     Route: 065
  4. Prionelle [Concomitant]
     Indication: Product used for unknown indication
     Dosage: 1 DOSAGE FORM, DAILY
     Route: 065
     Dates: start: 20220410
  5. Prionelle [Concomitant]
     Indication: Product used for unknown indication

REACTIONS (1)
  - Multiple acyl-coenzyme A dehydrogenase deficiency [Recovered/Resolved]

NARRATIVE: CASE EVENT DATE: 20220101
